FAERS Safety Report 17658549 (Version 2)
Quarter: 2020Q4

REPORT INFORMATION
  Report Type: Spontaneous
  Country: US (occurrence: US)
  Receive Date: 20200412
  Receipt Date: 20201007
  Transmission Date: 20210113
  Serious: No
  Sender: FDA-Public Use
  Company Number: US-SA-2020SA093007

PATIENT

DRUGS (9)
  1. DUPIXENT [Suspect]
     Active Substance: DUPILUMAB
     Indication: PHARYNGEAL ABSCESS
     Dosage: 300 MG, QOW
     Route: 058
  2. SINGULAIR [Concomitant]
     Active Substance: MONTELUKAST SODIUM
     Dosage: 1 DF
  3. LORATADINE. [Concomitant]
     Active Substance: LORATADINE
     Dosage: 1 DF
  4. SYMBICORT [Concomitant]
     Active Substance: BUDESONIDE\FORMOTEROL FUMARATE DIHYDRATE
     Dosage: 160-4.5 (HFA AER AD)
  5. TRAMADOL HCL [Concomitant]
     Active Substance: TRAMADOL HYDROCHLORIDE
     Dosage: 1 DF
  6. DUPIXENT [Suspect]
     Active Substance: DUPILUMAB
     Indication: SINUS POLYP
     Dosage: 300 MG, QOW
     Route: 058
  7. PREDNISONE. [Concomitant]
     Active Substance: PREDNISONE
     Dosage: 1 DF
  8. CYMBALTA [Concomitant]
     Active Substance: DULOXETINE HYDROCHLORIDE
     Dosage: 1 DF
  9. VENTOLIN HFA [Concomitant]
     Active Substance: ALBUTEROL SULFATE
     Dosage: 1 DF (HFA AER AD)

REACTIONS (8)
  - Skin exfoliation [Recovered/Resolved]
  - Dry skin [Recovered/Resolved]
  - Arthralgia [Unknown]
  - Injection site erythema [Recovered/Resolved]
  - Injection site rash [Recovered/Resolved]
  - Injection site reaction [Recovered/Resolved]
  - Pyrexia [Recovered/Resolved]
  - Product use in unapproved indication [Unknown]
